FAERS Safety Report 5650281-1 (Version None)
Quarter: 2008Q1

REPORT INFORMATION
  Report Type: 
  Country: None (occurrence: None)
  Receive Date: 20080131
  Receipt Date: 20071214
  Transmission Date: 20080703
  Serious: No
  Sender: FDA-Public Use
  Company Number: US200712003269

PATIENT
  Age: 57 Year
  Sex: Female
  Weight: 125.6 kg

DRUGS (3)
  1. BYETTA [Suspect]
     Indication: TYPE 2 DIABETES MELLITUS
     Dosage: 5UG, 2/D, SUBCUTANEOUS; 10 UG, 2/D, SUBUCUTANEOUS
     Route: 058
     Dates: start: 20070601, end: 20070901
  2. BYETTA [Suspect]
     Indication: TYPE 2 DIABETES MELLITUS
     Dosage: 5UG, 2/D, SUBCUTANEOUS; 10 UG, 2/D, SUBUCUTANEOUS
     Route: 058
     Dates: start: 20070905
  3. GLUCOPHAGE XR (METFORMIN (HYDROCHLORIDE) [Concomitant]

REACTIONS (3)
  - ANKLE FRACTURE [None]
  - INJECTION SITE HAEMORRHAGE [None]
  - WEIGHT DECREASED [None]
